FAERS Safety Report 8364610-1 (Version None)
Quarter: 2012Q2

REPORT INFORMATION
  Report Type: 
  Country: None (occurrence: None)
  Receive Date: 20120514
  Receipt Date: 20120510
  Transmission Date: 20120825
  Serious: Yes (Death, Other)
  Sender: FDA-Public Use
  Company Number: ADR-2007-3600

PATIENT
  Sex: Male

DRUGS (5)
  1. TETRACAINE POLYGYL STERILE OPHTHALMIC SOLUTION [Concomitant]
  2. HYDROMORPHONE HCL [Concomitant]
  3. CLONIDINE [Concomitant]
  4. KETAMINE HCL [Concomitant]
  5. BACLOFEN [Suspect]
     Indication: MUSCLE SPASTICITY
     Dosage: MCG, DAILY, INTRATH
     Route: 037

REACTIONS (5)
  - PAIN [None]
  - MALAISE [None]
  - NO THERAPEUTIC RESPONSE [None]
  - DEVICE DISLOCATION [None]
  - CONDITION AGGRAVATED [None]
